FAERS Safety Report 4436179-5 (Version None)
Quarter: 2004Q3

REPORT INFORMATION
  Report Type: 
  Country: None (occurrence: None)
  Receive Date: 20040830
  Receipt Date: 20040505
  Transmission Date: 20050211
  Serious: No
  Sender: FDA-Public Use
  Company Number: US-BRISTOL-MYERS SQUIBB COMPANY-12580262

PATIENT
  Age: 58 Year
  Sex: Male
  Weight: 73 kg

DRUGS (3)
  1. ERBITUX [Suspect]
     Indication: COLON CANCER
     Dosage: LOADING DOSE APPROX. 7 WKS AGO, 250 PER METER SQUARED WEEKLY
     Route: 042
  2. BENADRYL [Concomitant]
     Indication: PREMEDICATION
     Dosage: PRE-MEDICATION BEFORE ALL INFUSIONS
     Route: 042
  3. TYLENOL [Concomitant]
     Indication: PREMEDICATION
     Dosage: 10 GRAINS, BY MOUTH, BEFORE ALL INFUSIONS
     Route: 048

REACTIONS (3)
  - ACNE [None]
  - NAIL DISORDER [None]
  - SKIN FISSURES [None]
